FAERS Safety Report 10249771 (Version 1)
Quarter: 2014Q2

REPORT INFORMATION
  Report Type: Report from Study
  Country: AR (occurrence: AR)
  Receive Date: 20140620
  Receipt Date: 20140620
  Transmission Date: 20141212
  Serious: Yes (Hospitalization)
  Sender: FDA-Public Use
  Company Number: PHHY2014AR076704

PATIENT
  Sex: Male

DRUGS (1)
  1. DIOVAN D [Suspect]
     Indication: HYPERTENSION
     Dosage: 10 MG, UNK
     Dates: start: 2001, end: 200910

REACTIONS (3)
  - Intestinal haemorrhage [Unknown]
  - Pneumonia [Unknown]
  - Blood pressure decreased [Unknown]
